FAERS Safety Report 5143324-5 (Version None)
Quarter: 2006Q4

REPORT INFORMATION
  Report Type: 
  Country: None (occurrence: None)
  Receive Date: 20061030
  Receipt Date: 20061017
  Transmission Date: 20070319
  Serious: Yes (Other)
  Sender: FDA-Public Use
  Company Number: 2006127340

PATIENT
  Age: 73 Year
  Sex: Male
  Weight: 107.5025 kg

DRUGS (8)
  1. LYRICA [Suspect]
     Indication: NEURITIS
     Dosage: 150 MG (50 MG, 3 IN 1 D), ORAL
     Route: 048
     Dates: start: 20060101, end: 20060101
  2. EXTRA STRENGTH TYLENOL [Concomitant]
  3. WARFARIN SODIUM [Concomitant]
  4. DIGOXIN [Concomitant]
  5. ALLOPURINOL [Concomitant]
  6. VITAMIN B1 TAB [Concomitant]
  7. VITAMIN C (VITAMIN C) [Concomitant]
  8. FOLIC ACID [Concomitant]

REACTIONS (4)
  - ANAEMIA MACROCYTIC [None]
  - MARROW HYPERPLASIA [None]
  - MYELODYSPLASTIC SYNDROME [None]
  - MYELOFIBROSIS [None]
